FAERS Safety Report 5273129-6 (Version None)
Quarter: 2007Q1

REPORT INFORMATION
  Report Type: 
  Country: None (occurrence: None)
  Receive Date: 20070322
  Receipt Date: 20070308
  Transmission Date: 20070707
  Serious: Yes (Other)
  Sender: FDA-Public Use
  Company Number: JP-PFIZER INC-2007018786

PATIENT
  Age: 60 Year
  Sex: Male

DRUGS (1)
  1. UNASYN [Suspect]
     Dosage: DAILY DOSE:6GRAM
     Route: 042
     Dates: start: 20070228, end: 20070303

REACTIONS (3)
  - ARTHRITIS [None]
  - PYREXIA [None]
  - RASH [None]
